FAERS Safety Report 6486505-0 (Version None)
Quarter: 2009Q4

REPORT INFORMATION
  Report Type: 
  Country: None (occurrence: None)
  Receive Date: 20091210
  Receipt Date: 20091130
  Transmission Date: 20100525
  Serious: No
  Sender: FDA-Public Use
  Company Number: US-JNJFOC-20091200926

PATIENT
  Sex: Female

DRUGS (2)
  1. DURAGESIC-100 [Suspect]
     Indication: DRUG USE FOR UNKNOWN INDICATION
     Route: 062
     Dates: end: 20090101
  2. DURAGESIC-100 [Suspect]
     Route: 062
     Dates: start: 20090101

REACTIONS (1)
  - DRUG ADMINISTERED AT INAPPROPRIATE SITE [None]
